FAERS Safety Report 4929294-0 (Version None)
Quarter: 2006Q1

REPORT INFORMATION
  Report Type: 
  Country: None (occurrence: None)
  Receive Date: 20060223
  Receipt Date: 20060201
  Transmission Date: 20060701
  Serious: Yes (Hospitalization, Other)
  Sender: FDA-Public Use
  Company Number: US200602000183

PATIENT
  Age: 63 Year
  Sex: Female
  Weight: 69.4 kg

DRUGS (3)
  1. EVISTA [Suspect]
     Indication: OSTEOPOROSIS PROPHYLAXIS
     Dosage: 60 MG, DAILY (1/D), UNK
  2. IBUPROFEN [Concomitant]
  3. VITAMIN E [Concomitant]

REACTIONS (3)
  - BLOOD PRESSURE INCREASED [None]
  - CEREBRAL ATROPHY [None]
  - TRANSIENT ISCHAEMIC ATTACK [None]
